FAERS Safety Report 19163670 (Version 1)
Quarter: 2021Q2

REPORT INFORMATION
  Report Type: Spontaneous
  Country: NZ (occurrence: NZ)
  Receive Date: 20210421
  Receipt Date: 20210421
  Transmission Date: 20210717
  Serious: Yes (Other)
  Sender: FDA-Public Use
  Company Number: NZ-MACLEODS PHARMACEUTICALS US LTD-MAC2021030873

PATIENT

DRUGS (3)
  1. TRIAMCINOLONE ACETONIDE. [Suspect]
     Active Substance: TRIAMCINOLONE ACETONIDE
     Indication: NEOVASCULAR AGE-RELATED MACULAR DEGENERATION
     Dosage: 4 MILLIGRAM, SINGLE, INJECTION
  2. VERTEPORFIN [Concomitant]
     Active Substance: VERTEPORFIN
     Indication: PHOTODYNAMIC THERAPY
     Dosage: UNK, TOTAL OF THREE OVER 5 MONTHS, PHOTODYNAMIC THERAPY (PDT)
     Route: 065
  3. TRIAMCINOLONE ACETONIDE. [Suspect]
     Active Substance: TRIAMCINOLONE ACETONIDE
     Indication: CHOROIDAL NEOVASCULARISATION

REACTIONS (3)
  - Necrotising retinitis [Recovering/Resolving]
  - Retinitis viral [Unknown]
  - Ophthalmic herpes simplex [Unknown]
